FAERS Safety Report 5042211-0 (Version None)
Quarter: 2006Q2

REPORT INFORMATION
  Report Type: 
  Country: None (occurrence: None)
  Receive Date: 20060627
  Receipt Date: 20060612
  Transmission Date: 20061013
  Serious: Yes (Death, Hospitalization)
  Sender: FDA-Public Use
  Company Number: 2006S1004684

PATIENT
  Age: 24 Year
  Sex: Male

DRUGS (1)
  1. FENTANYL TRANSDERMAL SYSTEM [Suspect]
     Dates: start: 20060224, end: 20060225

REACTIONS (6)
  - ANOXIA [None]
  - APALLIC SYNDROME [None]
  - DRUG SCREEN POSITIVE [None]
  - LOSS OF CONSCIOUSNESS [None]
  - OVERDOSE [None]
  - SELF-MEDICATION [None]
